FAERS Safety Report 16886716 (Version 2)
Quarter: 2019Q4

REPORT INFORMATION
  Report Type: Spontaneous
  Country: GB (occurrence: GB)
  Receive Date: 20191004
  Receipt Date: 20191204
  Transmission Date: 20200122
  Serious: Yes (Other)
  Sender: FDA-Public Use
  Company Number: GB-MYLANLABS-2019M1012246

PATIENT
  Age: 34 Year
  Sex: Male

DRUGS (2)
  1. CLOZARIL [Suspect]
     Active Substance: CLOZAPINE
     Indication: SCHIZOPHRENIA
     Dosage: UNK
     Route: 048
     Dates: start: 20101104
  2. CLOZARIL [Suspect]
     Active Substance: CLOZAPINE
     Dosage: UNK
     Route: 048
     Dates: start: 20191002

REACTIONS (9)
  - Suicidal ideation [Unknown]
  - Neutropenia [Recovered/Resolved]
  - Nasopharyngitis [Recovering/Resolving]
  - Hallucination, auditory [Unknown]
  - Depressed mood [Unknown]
  - Persecutory delusion [Unknown]
  - Headache [Unknown]
  - White blood cell count decreased [Recovered/Resolved]
  - Feeling abnormal [Unknown]

NARRATIVE: CASE EVENT DATE: 20190205
